FAERS Safety Report 14674146 (Version 2)
Quarter: 2018Q2

REPORT INFORMATION
  Report Type: Other
  Country: CA (occurrence: CA)
  Receive Date: 20180323
  Receipt Date: 20180422
  Transmission Date: 20180711
  Serious: Yes (Life-Threatening, Other)
  Sender: FDA-Public Use
  Company Number: CA-APOTEX-2018AP008013

PATIENT
  Age: 28 Year
  Sex: Female

DRUGS (8)
  1. DIPHENHYDRAMINE. [Suspect]
     Active Substance: DIPHENHYDRAMINE
     Indication: PRODUCT USED FOR UNKNOWN INDICATION
     Dosage: UNK
     Route: 065
  2. BENADRYL [Concomitant]
     Active Substance: DIPHENHYDRAMINE HYDROCHLORIDE
     Indication: CHRONIC SPONTANEOUS URTICARIA
     Dosage: 1 DF, UNK
     Route: 041
  3. BENADRYL [Concomitant]
     Active Substance: DIPHENHYDRAMINE HYDROCHLORIDE
     Dosage: UNK
     Route: 030
  4. ZANTAC [Concomitant]
     Active Substance: RANITIDINE HYDROCHLORIDE
     Indication: CHRONIC SPONTANEOUS URTICARIA
     Dosage: 1 DF, QD
     Route: 041
  5. ALLEGRA [Concomitant]
     Active Substance: FEXOFENADINE HYDROCHLORIDE
     Indication: PRODUCT USED FOR UNKNOWN INDICATION
     Dosage: UNK
     Route: 065
  6. NALCROM [Concomitant]
     Active Substance: CROMOLYN SODIUM
     Indication: DYSPEPSIA
     Dosage: 1 DF, QD
     Route: 048
  7. REACTINE                           /00884302/ [Concomitant]
     Active Substance: CETIRIZINE HYDROCHLORIDE
     Indication: PRODUCT USED FOR UNKNOWN INDICATION
     Dosage: UNK
     Route: 065
  8. CLARITIN [Concomitant]
     Active Substance: LORATADINE
     Indication: PRODUCT USED FOR UNKNOWN INDICATION
     Dosage: UNK
     Route: 065

REACTIONS (23)
  - Rash [Unknown]
  - Diarrhoea [Unknown]
  - Migraine [Unknown]
  - Pruritus [Unknown]
  - Starvation [Unknown]
  - Anaphylactic reaction [Unknown]
  - Malaise [Unknown]
  - Vomiting [Unknown]
  - Bedridden [Unknown]
  - Body mass index decreased [Unknown]
  - Disturbance in attention [Unknown]
  - Dizziness [Unknown]
  - Feeding disorder [Unknown]
  - Feeling abnormal [Unknown]
  - Social avoidant behaviour [Unknown]
  - Swelling [Unknown]
  - Abdominal discomfort [Unknown]
  - Abdominal pain upper [Unknown]
  - Fatigue [Unknown]
  - Hunger [Unknown]
  - Impaired quality of life [Unknown]
  - Urticaria [Unknown]
  - Headache [Unknown]
